FAERS Safety Report 25907830 (Version 1)
Quarter: 2025Q4

REPORT INFORMATION
  Report Type: Report from Study
  Country: US (occurrence: US)
  Receive Date: 20251010
  Receipt Date: 20251010
  Transmission Date: 20260117
  Serious: No
  Sender: SANDOZ
  Company Number: US-SANDOZ-SDZ2025US074203

PATIENT
  Sex: Male

DRUGS (2)
  1. OMNITROPE [Suspect]
     Active Substance: SOMATROPIN
     Indication: Hypopituitarism
     Dosage: 1.4 MG, QD (STRENGTH 0 MG/1.5 ML) PEN 10
     Route: 058
  2. OMNITROPE [Suspect]
     Active Substance: SOMATROPIN
     Indication: Hypopituitarism
     Dosage: 1.4 MG, QD (STRENGTH 0 MG/1.5 ML) PEN 10
     Route: 058

REACTIONS (2)
  - Product dose omission issue [Unknown]
  - Device leakage [Unknown]
